FAERS Safety Report 13525340 (Version 1)
Quarter: 2017Q2

REPORT INFORMATION
  Report Type: Spontaneous
  Country: US (occurrence: US)
  Receive Date: 20170508
  Receipt Date: 20170508
  Transmission Date: 20170830
  Serious: No
  Sender: FDA-Public Use
  Company Number: US-ROCHE-1123636

PATIENT
  Sex: Male

DRUGS (8)
  1. AVASTIN [Suspect]
     Active Substance: BEVACIZUMAB
     Indication: MALIGNANT RESPIRATORY TRACT NEOPLASM
     Route: 065
     Dates: start: 20060203
  2. AVASTIN [Suspect]
     Active Substance: BEVACIZUMAB
     Indication: BRAIN NEOPLASM MALIGNANT
  3. TAXOTERE [Concomitant]
     Active Substance: DOCETAXEL
     Route: 065
     Dates: start: 20050301, end: 20050509
  4. CISPLATINUM [Concomitant]
     Active Substance: CISPLATIN
     Route: 065
     Dates: start: 20050301, end: 20050509
  5. CARBOPLATIN. [Concomitant]
     Active Substance: CARBOPLATIN
  6. IRESSA [Concomitant]
     Active Substance: GEFITINIB
  7. TARCEVA [Suspect]
     Active Substance: ERLOTINIB HYDROCHLORIDE
     Indication: MALIGNANT RESPIRATORY TRACT NEOPLASM
     Route: 065
  8. TAXOL [Concomitant]
     Active Substance: PACLITAXEL

REACTIONS (1)
  - Treatment failure [Unknown]
